FAERS Safety Report 4296779-2 (Version None)
Quarter: 2004Q1

REPORT INFORMATION
  Report Type: 
  Country: None (occurrence: None)
  Receive Date: 20040126
  Receipt Date: 20030905
  Transmission Date: 20041129
  Serious: No
  Sender: FDA-Public Use
  Company Number: USA030946385

PATIENT
  Age: 49 Year
  Sex: Male
  Weight: 151 kg

DRUGS (3)
  1. STRATTERA [Suspect]
     Indication: ATTENTION DEFICIT/HYPERACTIVITY DISORDER
     Dosage: 80 MG/DAY
     Dates: start: 20030820
  2. LIPITOR [Concomitant]
  3. BENICAR (BENICAR) [Concomitant]

REACTIONS (1)
  - DERMATITIS CONTACT [None]
